FAERS Safety Report 14963215 (Version 2)
Quarter: 2018Q3

REPORT INFORMATION
  Report Type: Spontaneous
  Country: US (occurrence: US)
  Receive Date: 20180601
  Receipt Date: 20180723
  Transmission Date: 20181010
  Serious: No
  Sender: FDA-Public Use
  Company Number: US-GLAXOSMITHKLINE-US2018093073

PATIENT
  Age: 73 Year
  Sex: Female

DRUGS (2)
  1. NICODERM CQ [Suspect]
     Active Substance: NICOTINE
     Indication: SMOKING CESSATION THERAPY
     Dosage: 14 MG, UNK
  2. NICODERM CQ [Suspect]
     Active Substance: NICOTINE
     Dosage: 14 MG, UNK

REACTIONS (4)
  - Wrong technique in product usage process [Unknown]
  - Drug hypersensitivity [Unknown]
  - Application site pruritus [Unknown]
  - Product quality issue [Unknown]
